FAERS Safety Report 8397043 (Version 8)
Quarter: 2013Q1

REPORT INFORMATION
  Report Type: Report from Study
  Country: AU (occurrence: AU)
  Receive Date: 20120209
  Receipt Date: 20130102
  Transmission Date: 20140127
  Serious: Yes (Hospitalization)
  Sender: FDA-Public Use
  Company Number: AU-AMGEN-AUSCT2012006761

PATIENT
  Age: 35 Year
  Sex: Female

DRUGS (8)
  1. DENOSUMAB [Suspect]
     Indication: BONE GIANT CELL TUMOUR
     Dosage: 120 MG, QMO
     Route: 058
     Dates: start: 20090812, end: 20101222
  2. GABAPENTIN [Concomitant]
     Dosage: 300 MG, UNK
     Route: 048
     Dates: start: 20101101
  3. ALLEGRON [Concomitant]
     Dosage: 10 MG, UNK
     Route: 048
     Dates: start: 20111005
  4. OXYCODONE [Concomitant]
     Dosage: 30 MG, BID
     Route: 048
     Dates: start: 20101029
  5. PRAMIN [Concomitant]
     Dosage: 10 MG, PRN
     Route: 048
     Dates: start: 20110611
  6. LEVLEN ED [Concomitant]
     Dosage: UNK UNK, QD
     Route: 048
     Dates: start: 20101201
  7. NAPROXEN [Concomitant]
     Dosage: 250 MG, QD
     Dates: start: 20110321
  8. NEXIUM [Concomitant]
     Dosage: 40 MG, QD
     Route: 048
     Dates: start: 20101222

REACTIONS (1)
  - Back pain [Recovered/Resolved]
